FAERS Safety Report 8432041-1 (Version None)
Quarter: 2012Q2

REPORT INFORMATION
  Report Type: 
  Country: None (occurrence: None)
  Receive Date: 20120613
  Receipt Date: 20120604
  Transmission Date: 20120825
  Serious: Yes (Life-Threatening, Hospitalization)
  Sender: FDA-Public Use
  Company Number: FR-JNJFOC-20120602507

PATIENT
  Age: 70 Year
  Sex: Female

DRUGS (6)
  1. REMICADE [Suspect]
     Indication: CROHN'S DISEASE
     Dosage: 3RD INFUSION
     Route: 042
     Dates: start: 20120503
  2. REMICADE [Suspect]
     Route: 042
     Dates: start: 20120322
  3. REMICADE [Suspect]
     Route: 042
     Dates: start: 20120405
  4. REMICADE [Suspect]
     Route: 042
     Dates: start: 20120405
  5. REMICADE [Suspect]
     Indication: PSORIATIC ARTHROPATHY
     Route: 042
     Dates: start: 20120322
  6. REMICADE [Suspect]
     Dosage: 3RD INFUSION
     Route: 042
     Dates: start: 20120503

REACTIONS (1)
  - MENINGITIS LISTERIA [None]
